FAERS Safety Report 14125940 (Version 1)
Quarter: 2017Q4

REPORT INFORMATION
  Report Type: Spontaneous
  Country: US (occurrence: US)
  Receive Date: 20171025
  Receipt Date: 20171025
  Transmission Date: 20180321
  Serious: No
  Sender: FDA-Public Use
  Company Number: US-BIOMARINAP-US-2017-115824

PATIENT
  Age: 24 Year
  Sex: Female
  Weight: 32.2 kg

DRUGS (1)
  1. NAGLAZYME [Suspect]
     Active Substance: GALSULFASE
     Indication: PRODUCT USED FOR UNKNOWN INDICATION
     Dosage: 30 MG, QW
     Route: 042
     Dates: start: 201005

REACTIONS (1)
  - Catheter site swelling [Unknown]

NARRATIVE: CASE EVENT DATE: 20171018
